FAERS Safety Report 13287187 (Version 1)
Quarter: 2017Q1

REPORT INFORMATION
  Report Type: Spontaneous
  Country: US (occurrence: US)
  Receive Date: 20170302
  Receipt Date: 20170302
  Transmission Date: 20170428
  Serious: No
  Sender: FDA-Public Use
  Company Number: US-PURDUE-USA-2016-0135458

PATIENT
  Sex: Female
  Weight: 81.63 kg

DRUGS (1)
  1. OXYCODONE/ ACETAMINOPHEN TABLETS [Suspect]
     Active Substance: ACETAMINOPHEN\OXYCODONE HYDROCHLORIDE
     Indication: MENSTRUAL DISCOMFORT
     Dosage: 5/325 MG 1 TABLET, PRN
     Route: 048
     Dates: start: 20161215, end: 20161215

REACTIONS (3)
  - Fatigue [Unknown]
  - Product physical issue [Unknown]
  - Dizziness [Unknown]
